FAERS Safety Report 5258183-X (Version None)
Quarter: 2007Q1

REPORT INFORMATION
  Report Type: 
  Country: None (occurrence: None)
  Receive Date: 20070307
  Receipt Date: 20070301
  Transmission Date: 20070707
  Serious: Yes (Hospitalization)
  Sender: FDA-Public Use
  Company Number: GB-ABBOTT-07P-167-0360806-00

PATIENT
  Sex: Male
  Weight: 70 kg

DRUGS (11)
  1. HUMIRA [Suspect]
     Indication: RHEUMATOID ARTHRITIS
     Route: 058
     Dates: start: 20050225, end: 20060301
  2. METHOTREXATE [Concomitant]
     Indication: DRUG USE FOR UNKNOWN INDICATION
  3. PREDNISOLONE [Concomitant]
     Indication: DRUG USE FOR UNKNOWN INDICATION
  4. CALCIUM [Concomitant]
     Indication: DRUG USE FOR UNKNOWN INDICATION
  5. DIHYDROCODEINE BITARTRATE INJ [Concomitant]
     Indication: DRUG USE FOR UNKNOWN INDICATION
  6. ETODOLAC [Concomitant]
     Indication: DRUG USE FOR UNKNOWN INDICATION
  7. FOLIC ACID [Concomitant]
     Indication: DRUG USE FOR UNKNOWN INDICATION
  8. ISONIAZID [Concomitant]
     Indication: DRUG USE FOR UNKNOWN INDICATION
  9. PYRIDOXINE HCL [Concomitant]
     Indication: DRUG USE FOR UNKNOWN INDICATION
  10. RABEPRAZOLE SODIUM [Concomitant]
     Indication: DRUG USE FOR UNKNOWN INDICATION
  11. SILDENAFIL CITRATE [Concomitant]
     Indication: DRUG USE FOR UNKNOWN INDICATION

REACTIONS (1)
  - GAIT DISTURBANCE [None]
